FAERS Safety Report 16921392 (Version 1)
Quarter: 2019Q4

REPORT INFORMATION
  Report Type: Spontaneous
  Country: US (occurrence: US)
  Receive Date: 20191015
  Receipt Date: 20191015
  Transmission Date: 20200122
  Serious: Yes (Life-Threatening, Hospitalization, Other)
  Sender: FDA-Public Use
  Company Number: US-SA-2019SA284925

PATIENT
  Age: 52 Year
  Sex: Male
  Weight: 74.84 kg

DRUGS (1)
  1. ALEMTUZUMAB [Suspect]
     Active Substance: ALEMTUZUMAB
     Dosage: 12 MG, UNK
     Route: 042
     Dates: start: 201511, end: 20170208

REACTIONS (5)
  - Contusion [Unknown]
  - Joint swelling [Unknown]
  - Autoimmune haemolytic anaemia [Unknown]
  - Acquired haemophilia [Unknown]
  - Factor VIII deficiency [Unknown]

NARRATIVE: CASE EVENT DATE: 201901
